FAERS Safety Report 7033228-5 (Version None)
Quarter: 2010Q4

REPORT INFORMATION
  Report Type: 
  Country: None (occurrence: None)
  Receive Date: 20101004
  Receipt Date: 20100920
  Transmission Date: 20110411
  Serious: Yes (Hospitalization)
  Sender: FDA-Public Use
  Company Number: 2010MA002885

PATIENT
  Age: 55 Year
  Sex: Female

DRUGS (3)
  1. CITALOPRAM HYDROBROMIDE [Suspect]
     Indication: DEPRESSION
  2. METHYLTHIONINIUM CHLORIDE [Suspect]
     Dosage: 7.5 MG/KG;
  3. BUPROPION [Concomitant]

REACTIONS (15)
  - AGITATION [None]
  - BLINDNESS CORTICAL [None]
  - CHOREA [None]
  - CONFUSIONAL STATE [None]
  - DISORIENTATION [None]
  - ENCEPHALOPATHY [None]
  - EYE MOVEMENT DISORDER [None]
  - HYPERHIDROSIS [None]
  - HYPERREFLEXIA [None]
  - HYPERTENSION [None]
  - LIVER FUNCTION TEST ABNORMAL [None]
  - MYDRIASIS [None]
  - PARATHYROID TUMOUR BENIGN [None]
  - TACHYCARDIA [None]
  - URINE CALCIUM INCREASED [None]
